FAERS Safety Report 10410951 (Version 1)
Quarter: 2014Q2

REPORT INFORMATION
  Report Type: Spontaneous
  Country: US (occurrence: None)
  Receive Date: 20140604
  Receipt Date: 20140604
  Transmission Date: 20141212
  Serious: Yes (Hospitalization)
  Sender: FDA-Public Use
  Company Number: 20100528CINRY1507

PATIENT
  Age: 27 Year
  Sex: Female

DRUGS (15)
  1. CINRYZE [Suspect]
     Indication: HEREDITARY ANGIOEDEMA
     Route: 042
     Dates: start: 200904
  2. CINRYZE [Suspect]
     Indication: PROPHYLAXIS
     Route: 042
     Dates: start: 200904
  3. PEPCID (FAMOTIDINE) [Concomitant]
  4. SENOKOT S (COLOXYL WITH SENNA) [Concomitant]
  5. IMITREX (SUMATRIPTAN) [Concomitant]
  6. LORAZEPAM [Concomitant]
  7. BENADRYL (DIPHENHYDRAMINE HYDROCHLORIDE) [Concomitant]
  8. ZOFRAN (ONDANSETRON) [Concomitant]
  9. FLUOXETINE [Concomitant]
  10. OXYCODONE [Concomitant]
  11. OXYCONTIN (OXYCODONE HYDROCHLORIDE) [Concomitant]
  12. COUMADIN (WARFARIN SODIUM) [Concomitant]
  13. HEPARIN FLUSH (HEPARIN SODIUM) [Concomitant]
  14. SALINE FLUSH (SODIUM CHLORIDE) [Concomitant]
  15. PROCARDIA XL (NIFEDIPINE) [Concomitant]

REACTIONS (2)
  - Hypersensitivity [None]
  - Incorrect drug administration duration [None]
